FAERS Safety Report 23093528 (Version 1)
Quarter: 2023Q4

REPORT INFORMATION
  Report Type: Spontaneous
  Country: US (occurrence: US)
  Receive Date: 20231023
  Receipt Date: 20231023
  Transmission Date: 20240109
  Serious: No
  Sender: FDA-Public Use
  Company Number: US-Teikoku Pharma USA-TPU2023-00507

PATIENT
  Sex: Female
  Weight: 62.652 kg

DRUGS (11)
  1. LIDOCAINE PATCH [Suspect]
     Active Substance: LIDOCAINE
     Indication: Neurofibromatosis
     Route: 061
     Dates: start: 20230820
  2. GABAPENTIN [Concomitant]
     Active Substance: GABAPENTIN
  3. POTASSIUM CHLORIDE [Concomitant]
     Active Substance: POTASSIUM CHLORIDE
  4. Triamterene- HCTZ [Concomitant]
     Dosage: 75/50 MG ONCE DAILY
  5. BUPROPION [Concomitant]
     Active Substance: BUPROPION
  6. ELIQUIS [Concomitant]
     Active Substance: APIXABAN
  7. LISINOPRIL [Concomitant]
     Active Substance: LISINOPRIL
  8. METOPROLOL [Concomitant]
     Active Substance: METOPROLOL
  9. AMIODARONE [Concomitant]
     Active Substance: AMIODARONE
  10. TRAMADOL [Concomitant]
     Active Substance: TRAMADOL\TRAMADOL HYDROCHLORIDE
  11. VICODIN [Concomitant]
     Active Substance: ACETAMINOPHEN\HYDROCODONE BITARTRATE
     Dosage: 325/5 MG, PATIENT SAYS SHE TAKES VICODIN 1-2 PILLS A WEEK AS NEEDED FOR PAIN.

REACTIONS (1)
  - Wrong technique in product usage process [Unknown]
